FAERS Safety Report 23455866 (Version 1)
Quarter: 2024Q1

REPORT INFORMATION
  Report Type: Spontaneous
  Country: US (occurrence: None)
  Receive Date: 20240129
  Receipt Date: 20240129
  Transmission Date: 20240409
  Serious: Yes (Hospitalization)
  Sender: FDA-Public Use
  Company Number: None

PATIENT
  Age: 63 Year
  Sex: Female
  Weight: 78 kg

DRUGS (13)
  1. VANCOMYCIN [Suspect]
     Active Substance: VANCOMYCIN
     Indication: Osteomyelitis
     Dosage: FREQUENCY : DAILY;?
     Route: 042
     Dates: start: 20231106, end: 20231127
  2. gabpentin [Concomitant]
  3. RIFAMPIN [Concomitant]
     Active Substance: RIFAMPIN
  4. acetaminphen [Concomitant]
  5. OXYCODONE [Concomitant]
     Active Substance: OXYCODONE\OXYCODONE HYDROCHLORIDE
  6. ALBUTEROL SULFATE [Concomitant]
     Active Substance: ALBUTEROL SULFATE
  7. fluticasone furoate-vilanterol [Concomitant]
  8. CITALOPRAM [Concomitant]
     Active Substance: CITALOPRAM HYDROBROMIDE
  9. DOCUSATE [Concomitant]
     Active Substance: DOCUSATE
  10. METOPROLOL TARTRATE [Concomitant]
     Active Substance: METOPROLOL TARTRATE
  11. OMEPRAZOLE [Concomitant]
     Active Substance: OMEPRAZOLE
  12. ONDANSETRON [Concomitant]
     Active Substance: ONDANSETRON
  13. TRIAMTERENE AND HYDROCHLOROTHIAZIDE [Concomitant]
     Active Substance: HYDROCHLOROTHIAZIDE\TRIAMTERENE

REACTIONS (7)
  - Catheter site bruise [None]
  - Catheter site pruritus [None]
  - Hypotension [None]
  - Tachycardia [None]
  - Dizziness [None]
  - Hepatic enzyme increased [None]
  - Eosinophilia [None]

NARRATIVE: CASE EVENT DATE: 20231127
